FAERS Safety Report 5931968-X (Version None)
Quarter: 2008Q4

REPORT INFORMATION
  Report Type: 
  Country: None (occurrence: None)
  Receive Date: 20081027
  Receipt Date: 20081023
  Transmission Date: 20090506
  Serious: Yes (Life-Threatening, Hospitalization)
  Sender: FDA-Public Use
  Company Number: PHHY2008IL25651

PATIENT
  Age: 85 Year

DRUGS (1)
  1. SANDOSTATIN LAR [Suspect]
     Indication: ACROMEGALY
     Dosage: 40 MG EVERY 28 DAYS

REACTIONS (5)
  - ANAPHYLACTIC REACTION [None]
  - ASCITES [None]
  - HAEMOGLOBIN DECREASED [None]
  - OVARIAN CANCER [None]
  - PARACENTESIS [None]
